FAERS Safety Report 5454637-1 (Version None)
Quarter: 2007Q3

REPORT INFORMATION
  Report Type: 
  Country: None (occurrence: None)
  Receive Date: 20070917
  Receipt Date: 20070330
  Transmission Date: 20080115
  Serious: Yes (Hospitalization, Other)
  Sender: FDA-Public Use
  Company Number: US-ASTRAZENECA-2006UW12343

PATIENT
  Age: 16611 Day
  Sex: Female
  Weight: 75 kg

DRUGS (5)
  1. SEROQUEL [Suspect]
     Indication: BIPOLAR DISORDER
     Route: 048
     Dates: start: 19991201
  2. SEROQUEL [Suspect]
     Indication: DEPRESSION
     Route: 048
     Dates: start: 19991201
  3. RISPERDAL [Concomitant]
     Dates: start: 19990101
  4. METHADONE HCL [Concomitant]
     Indication: ANALGESIA
  5. ZYPREXA [Concomitant]
     Dosage: DOES NOT RECALL

REACTIONS (9)
  - BACK PAIN [None]
  - DIABETES MELLITUS [None]
  - DIABETIC KETOACIDOSIS [None]
  - FIBROMYALGIA [None]
  - GASTROENTERITIS [None]
  - GLYCOSURIA [None]
  - HYPERGLYCAEMIA [None]
  - PANCREATITIS [None]
  - TEETH BRITTLE [None]
